FAERS Safety Report 17973919 (Version 1)
Quarter: 2020Q3

REPORT INFORMATION
  Report Type: Spontaneous
  Country: CN (occurrence: CN)
  Receive Date: 20200702
  Receipt Date: 20200702
  Transmission Date: 20201103
  Serious: Yes (Hospitalization, Other)
  Sender: FDA-Public Use
  Company Number: CN-PFIZER INC-2020252385

PATIENT
  Age: 3 Year
  Sex: Male
  Weight: 12 kg

DRUGS (3)
  1. SOLU?MEDROL [Suspect]
     Active Substance: METHYLPREDNISOLONE SODIUM SUCCINATE
     Indication: URTICARIA
     Dosage: 12 MG, 2X/DAY
     Route: 041
     Dates: start: 20200618, end: 20200620
  2. ROCEPHIN [Concomitant]
     Active Substance: CEFTRIAXONE SODIUM
     Indication: PHARYNGITIS
     Dosage: 1 G, 1X/DAY
     Route: 041
     Dates: start: 20200618, end: 20200620
  3. GLUCOSE AND SODIUM CHLORIDE [Concomitant]
     Active Substance: DEXTROSE\SODIUM CHLORIDE
     Indication: VEHICLE SOLUTION USE
     Dosage: 100 ML, 2X/DAY
     Route: 041
     Dates: start: 20200618, end: 20200620

REACTIONS (4)
  - Intestinal obstruction [Unknown]
  - Gastrointestinal perforation [Recovered/Resolved]
  - Pleural effusion [Unknown]
  - Peritonitis [Unknown]

NARRATIVE: CASE EVENT DATE: 20200620
